FAERS Safety Report 8960091 (Version 2)
Quarter: 2013Q1

REPORT INFORMATION
  Report Type: Spontaneous
  Country: JP (occurrence: JP)
  Receive Date: 20121212
  Receipt Date: 20130122
  Transmission Date: 20140127
  Serious: No
  Sender: FDA-Public Use
  Company Number: JP-UCBSA-072700

PATIENT
  Age: 36 Year
  Sex: Male
  Weight: 82 kg

DRUGS (7)
  1. E KEPPRA [Suspect]
     Indication: LENNOX-GASTAUT SYNDROME
     Route: 048
     Dates: start: 20101007, end: 20101026
  2. SELENICA-R [Concomitant]
     Indication: LENNOX-GASTAUT SYNDROME
     Dosage: DAILY DOSE 1700 MG
     Route: 048
  3. TEGRETOL [Concomitant]
     Indication: LENNOX-GASTAUT SYNDROME
     Dosage: DAILY DOSE 624.9 MG
     Route: 048
  4. RIVOTRIL [Concomitant]
     Indication: LENNOX-GASTAUT SYNDROME
     Dosage: DAILY DOSE 2.5 MG
     Route: 048
  5. LAMICTAL [Concomitant]
     Indication: LENNOX-GASTAUT SYNDROME
     Dosage: DAILY DOSE 100 MG
     Route: 048
     Dates: start: 20081224
  6. ROHYPNOL [Concomitant]
     Indication: LENNOX-GASTAUT SYNDROME
     Dosage: DAILY DOSE 8 MG
     Route: 048
  7. ROHYPNOL [Concomitant]
     Indication: MOOD ALTERED
     Dosage: DAILY DOSE 8 MG
     Route: 048

REACTIONS (3)
  - Urinary retention [Recovered/Resolved]
  - Oedema [Recovered/Resolved]
  - Wrong technique in drug usage process [Unknown]
